FAERS Safety Report 25889121 (Version 1)
Quarter: 2025Q4

REPORT INFORMATION
  Report Type: Spontaneous
  Country: GB (occurrence: GB)
  Receive Date: 20251007
  Receipt Date: 20251007
  Transmission Date: 20260117
  Serious: Yes (Life-Threatening, Other)
  Sender: ABBVIE
  Company Number: None

PATIENT
  Age: 42 Year
  Sex: Female
  Weight: 86 kg

DRUGS (4)
  1. DEXAMETHASONE [Suspect]
     Active Substance: DEXAMETHASONE
     Indication: Anaesthesia
     Dosage: TIME INTERVAL: AS NECESSARY: 6.6 MG IV, FORM STRENGTH: 3.3MG/ML
     Route: 050
     Dates: start: 20250923, end: 20250923
  2. ONDANSETRON [Suspect]
     Active Substance: ONDANSETRON
     Indication: Anaesthesia
     Dosage: 4 MG IV, FORM STRENGTH: 4MG/2ML.
     Route: 065
     Dates: start: 20250923, end: 20250923
  3. REMIFENTANIL [Suspect]
     Active Substance: REMIFENTANIL
     Indication: Anaesthesia
     Route: 065
     Dates: start: 20250923, end: 20250923
  4. AMOXICILLIN\CLAVULANIC ACID [Suspect]
     Active Substance: AMOXICILLIN\CLAVULANIC ACID
     Indication: Surgery
     Dosage: 1.2 G IV
     Route: 065
     Dates: start: 20250923, end: 20250923

REACTIONS (8)
  - Hypotension [Recovered/Resolved]
  - Sinus tachycardia [Recovered/Resolved]
  - Piloerection [Recovered/Resolved]
  - Cardiac arrest [Recovered/Resolved]
  - Generalised oedema [Recovered/Resolved]
  - PCO2 decreased [Unknown]
  - Anaphylactic reaction [Unknown]
  - Pulseless electrical activity [Unknown]

NARRATIVE: CASE EVENT DATE: 20250923
